FAERS Safety Report 8388411-3 (Version None)
Quarter: 2012Q2

REPORT INFORMATION
  Report Type: 
  Country: None (occurrence: None)
  Receive Date: 20120525
  Receipt Date: 20120514
  Transmission Date: 20120825
  Serious: Yes (Death, Hospitalization)
  Sender: FDA-Public Use
  Company Number: TW-TEVA-338123ISR

PATIENT
  Age: 49 Year
  Sex: Female

DRUGS (3)
  1. CYCLOPHOSPHAMIDE [Suspect]
     Indication: BREAST CANCER STAGE II
     Route: 065
  2. FLUOROURACIL [Suspect]
     Indication: BREAST CANCER STAGE II
     Route: 065
  3. EPIRUBICIN [Suspect]
     Indication: BREAST CANCER STAGE II
     Route: 065

REACTIONS (1)
  - ACUTE LYMPHOCYTIC LEUKAEMIA [None]
